FAERS Safety Report 21354554 (Version 1)
Quarter: 2022Q3

REPORT INFORMATION
  Report Type: Spontaneous
  Country: FR (occurrence: FR)
  Receive Date: 20220920
  Receipt Date: 20220920
  Transmission Date: 20221026
  Serious: Yes (Other)
  Sender: FDA-Public Use
  Company Number: None

PATIENT
  Age: 82 Year
  Sex: Male
  Weight: 101 kg

DRUGS (2)
  1. LEVOFLOXACIN [Suspect]
     Active Substance: LEVOFLOXACIN
     Indication: Arthritis infective
     Dosage: 500 MG, QD
     Route: 048
     Dates: start: 20220722, end: 20220913
  2. RIFAMPIN [Concomitant]
     Active Substance: RIFAMPIN
     Indication: Arthritis infective
     Dosage: 1200 MG, QD (600 MG MATIN ET SOIR)
     Route: 048
     Dates: start: 20220722, end: 20220913

REACTIONS (1)
  - Tendon disorder [Not Recovered/Not Resolved]

NARRATIVE: CASE EVENT DATE: 20220901
